FAERS Safety Report 17884273 (Version 1)
Quarter: 2020Q2

REPORT INFORMATION
  Report Type: Spontaneous
  Country: DK (occurrence: DK)
  Receive Date: 20200611
  Receipt Date: 20200611
  Transmission Date: 20200714
  Serious: Yes (Hospitalization)
  Sender: FDA-Public Use
  Company Number: DK-BIOGEN-2020BI00883282

PATIENT
  Age: 62 Year
  Sex: Female

DRUGS (8)
  1. CLIOVELLE [Concomitant]
     Active Substance: ESTRADIOL VALERATE\NORETHINDRONE ACETATE
     Indication: HORMONE THERAPY
     Dosage: DOSE: 0.5 + 1 MG
     Route: 048
     Dates: start: 20130821, end: 20200420
  2. ROSUVASTATIN ^SANDOZ^ [Concomitant]
     Active Substance: ROSUVASTATIN CALCIUM
     Indication: HYPERCHOLESTEROLAEMIA
     Dosage: DOSE: 5 MG
     Route: 048
     Dates: start: 20190828
  3. SERTRALIN ^HEXAL^ [Concomitant]
     Active Substance: SERTRALINE HYDROCHLORIDE
     Indication: MENTAL DISORDER
     Dosage: STYRKE: 100 MG
     Route: 048
     Dates: start: 20120102
  4. BACLOFEN. [Concomitant]
     Active Substance: BACLOFEN
     Indication: MUSCLE SPASMS
     Dosage: DOSE: 10 MG
     Route: 048
     Dates: start: 20110228
  5. VOLTABAK [Concomitant]
     Indication: EYE INFLAMMATION
     Dosage: DOSE: 1 MG/ML
     Route: 050
     Dates: start: 20190109, end: 20200420
  6. NIZORAL [Concomitant]
     Active Substance: KETOCONAZOLE
     Indication: SKIN EXFOLIATION
     Dosage: DOSE: 2%
     Route: 061
     Dates: start: 20110624
  7. MONOPEX [Concomitant]
     Indication: EYE INFLAMMATION
     Dosage: DOSE: 1 MG/ML
     Route: 050
     Dates: start: 20200106, end: 20200420
  8. TYSABRI [Suspect]
     Active Substance: NATALIZUMAB
     Indication: MULTIPLE SCLEROSIS
     Dosage: DOSE: 300 MG
     Route: 042
     Dates: start: 20070130, end: 20200428

REACTIONS (1)
  - Breast cancer [Not Recovered/Not Resolved]

NARRATIVE: CASE EVENT DATE: 202003
